FAERS Safety Report 6645778-1 (Version None)
Quarter: 2010Q1

REPORT INFORMATION
  Report Type: 
  Country: None (occurrence: None)
  Receive Date: 20100323
  Receipt Date: 20100310
  Transmission Date: 20100710
  Serious: Yes (Hospitalization)
  Sender: FDA-Public Use
  Company Number: HU-JNJFOC-20100302691

PATIENT
  Age: 29 Year
  Sex: Female

DRUGS (3)
  1. INFLIXIMAB [Suspect]
     Indication: CROHN'S DISEASE
     Route: 042
  2. INFLIXIMAB [Suspect]
     Dosage: INDUCTION
     Route: 042
  3. STEROIDS NOS [Concomitant]
     Indication: CROHN'S DISEASE

REACTIONS (2)
  - DEVICE RELATED SEPSIS [None]
  - FUNGAL SEPSIS [None]
